FAERS Safety Report 14155444 (Version 2)
Quarter: 2017Q4

REPORT INFORMATION
  Report Type: Spontaneous
  Country: UA (occurrence: UA)
  Receive Date: 20171103
  Receipt Date: 20171123
  Transmission Date: 20180321
  Serious: Yes (Death)
  Sender: FDA-Public Use
  Company Number: UA-ROCHE-2019064

PATIENT
  Age: 57 Year
  Sex: Male

DRUGS (3)
  1. XELODA [Suspect]
     Active Substance: CAPECITABINE
     Indication: SMALL INTESTINE CARCINOMA
     Route: 048
     Dates: start: 201703, end: 201706
  2. OXALIPLATIN. [Suspect]
     Active Substance: OXALIPLATIN
     Indication: SMALL INTESTINE CARCINOMA
     Route: 065
     Dates: start: 201703, end: 201706
  3. LEUCOVORIN. [Suspect]
     Active Substance: LEUCOVORIN
     Indication: SMALL INTESTINE CARCINOMA
     Route: 065
     Dates: start: 201703, end: 201706

REACTIONS (1)
  - Neoplasm malignant [Fatal]
